FAERS Safety Report 22178059 (Version 2)
Quarter: 2023Q2

REPORT INFORMATION
  Report Type: Spontaneous
  Country: US (occurrence: US)
  Receive Date: 20230405
  Receipt Date: 20230511
  Transmission Date: 20230721
  Serious: Yes (Other)
  Sender: FDA-Public Use
  Company Number: US-PFIZER INC-202300128958

PATIENT
  Age: 48 Year
  Sex: Female
  Weight: 72.57 kg

DRUGS (2)
  1. PAXLOVID [Suspect]
     Active Substance: NIRMATRELVIR\RITONAVIR
     Indication: COVID-19 treatment
     Dosage: UNK
     Dates: start: 20230323, end: 20230327
  2. SYNTHROID [Concomitant]
     Active Substance: LEVOTHYROXINE SODIUM
     Indication: Thyroid disorder
     Dosage: 75 UG

REACTIONS (18)
  - Intracranial pressure increased [Unknown]
  - Neuropathy peripheral [Unknown]
  - Hypoacusis [Unknown]
  - COVID-19 [Unknown]
  - Disease recurrence [Unknown]
  - Lethargy [Unknown]
  - Fatigue [Unknown]
  - Head discomfort [Unknown]
  - Neuralgia [Unknown]
  - Tremor [Unknown]
  - Headache [Unknown]
  - Eye irritation [Unknown]
  - Lacrimation increased [Unknown]
  - Chest discomfort [Unknown]
  - Productive cough [Unknown]
  - Sinus congestion [Unknown]
  - Dizziness [Unknown]
  - Photosensitivity reaction [Unknown]

NARRATIVE: CASE EVENT DATE: 20230101
